FAERS Safety Report 6317453-4 (Version None)
Quarter: 2009Q3

REPORT INFORMATION
  Report Type: 
  Country: None (occurrence: None)
  Receive Date: 20090821
  Receipt Date: 20090723
  Transmission Date: 20100115
  Serious: Yes (Other)
  Sender: FDA-Public Use
  Company Number: US-JNJFOC-20090801163

PATIENT
  Age: 58 Year
  Sex: Male
  Weight: 104.33 kg

DRUGS (9)
  1. DARUNAVIR [Suspect]
     Indication: HIV INFECTION
     Route: 048
  2. ETRAVIRINE [Suspect]
     Indication: HIV INFECTION
     Route: 048
  3. RALTEGRAVIR [Suspect]
     Indication: HIV INFECTION
     Route: 048
  4. RITONAVIR [Suspect]
     Indication: HIV INFECTION
     Route: 048
  5. HYDROCHLOROTHIAZIDE [Concomitant]
     Indication: HYPERTENSION
     Route: 048
  6. COZAAR [Concomitant]
     Indication: HYPERTENSION
     Route: 048
  7. ACYCLOVIR [Concomitant]
     Indication: PROPHYLAXIS
     Route: 048
  8. TOCOPHEROL CONCENTRATE CAP [Concomitant]
  9. COENZYME Q10 [Concomitant]

REACTIONS (1)
  - HEPATITIS B [None]
